FAERS Safety Report 12197454 (Version 2)
Quarter: 2016Q2

REPORT INFORMATION
  Report Type: Spontaneous
  Country: DE (occurrence: DE)
  Receive Date: 20160322
  Receipt Date: 20160404
  Transmission Date: 20160815
  Serious: Yes (Other)
  Sender: FDA-Public Use
  Company Number: DE-BRISTOL-MYERS SQUIBB COMPANY-BMS-2016-017147

PATIENT
  Sex: Male
  Weight: 67 kg

DRUGS (4)
  1. ADENURIC [Concomitant]
     Active Substance: FEBUXOSTAT
     Indication: PRODUCT USED FOR UNKNOWN INDICATION
     Dosage: 80 MG, UNK
     Route: 065
  2. ELIQUIS [Concomitant]
     Active Substance: APIXABAN
     Indication: PRODUCT USED FOR UNKNOWN INDICATION
     Route: 065
  3. LITALIR [Suspect]
     Active Substance: HYDROXYUREA
     Indication: CHRONIC LEUKAEMIA
     Dosage: 1 DF, (1/2 CAPSULE)
     Route: 048
     Dates: start: 20160125
  4. CONCOR [Concomitant]
     Active Substance: BISOPROLOL FUMARATE
     Indication: PRODUCT USED FOR UNKNOWN INDICATION
     Route: 065

REACTIONS (8)
  - Weight decreased [Unknown]
  - Gout [Unknown]
  - Blood test abnormal [Unknown]
  - Decreased appetite [Unknown]
  - Renal failure [Unknown]
  - Dysgeusia [Unknown]
  - Intentional product misuse [Unknown]
  - Oligodipsia [Unknown]
